FAERS Safety Report 5451509-3 (Version None)
Quarter: 2007Q3

REPORT INFORMATION
  Report Type: 
  Country: None (occurrence: None)
  Receive Date: 20070913
  Receipt Date: 20070912
  Transmission Date: 20080115
  Serious: Yes (Hospitalization)
  Sender: FDA-Public Use
  Company Number: US-ASTRAZENECA-2007UW21556

PATIENT
  Age: 37 Year
  Sex: Female
  Weight: 72.6 kg

DRUGS (4)
  1. SEROQUEL [Suspect]
     Indication: SLEEP DISORDER
     Route: 048
     Dates: start: 20040101
  2. PROZAC [Concomitant]
  3. XANAX [Concomitant]
  4. CRESTOR [Concomitant]

REACTIONS (3)
  - MYOCARDIAL INFARCTION [None]
  - OVARIAN MASS [None]
  - WEIGHT INCREASED [None]
